FAERS Safety Report 11755816 (Version 2)
Quarter: 2016Q4

REPORT INFORMATION
  Report Type: Report from Study
  Country: CR (occurrence: CR)
  Receive Date: 20151119
  Receipt Date: 20161025
  Transmission Date: 20170206
  Serious: Yes (Other)
  Sender: FDA-Public Use
  Company Number: CR-BAYER-2015-464211

PATIENT
  Sex: Male

DRUGS (1)
  1. BETAFERON [Suspect]
     Active Substance: INTERFERON BETA-1B
     Dosage: UNK
     Dates: start: 201410

REACTIONS (4)
  - Urinary tract disorder [None]
  - Multiple sclerosis [None]
  - Asthenia [None]
  - Fatigue [None]
